FAERS Safety Report 4607733-2 (Version None)
Quarter: 2005Q1

REPORT INFORMATION
  Report Type: 
  Country: None (occurrence: None)
  Receive Date: 20050310
  Receipt Date: 20050303
  Transmission Date: 20050727
  Serious: Yes (Hospitalization, Other)
  Sender: FDA-Public Use
  Company Number: 05-136

PATIENT
  Age: 76 Year
  Sex: Female

DRUGS (12)
  1. ISOPTIN [Suspect]
     Dosage: 180 MG, ORAL
     Route: 048
  2. TELITHYROMYCIN [Suspect]
     Indication: MALAISE
     Dosage: 800MG,  ORAL 2 DAYS PRIOR TO  HOSPITALIZATION
     Route: 048
  3. TELITHYROMYCIN [Suspect]
     Indication: NASAL CONGESTION
     Dosage: 800MG,  ORAL 2 DAYS PRIOR TO  HOSPITALIZATION
     Route: 048
  4. ESOMEPRAZOLE [Concomitant]
  5. TELMISARTAN [Concomitant]
  6. FUROSEMIDE [Concomitant]
  7. MOTELUKAST [Concomitant]
  8. COLESEVELEM [Concomitant]
  9. OXAPROZIN [Concomitant]
  10. ALBUTEROL [Concomitant]
  11. FLUTICASONE PROPIONATE [Concomitant]
  12. BUDESONIDE [Concomitant]

REACTIONS (13)
  - ASTHENIA [None]
  - BRADYCARDIA [None]
  - CENTRAL VENOUS PRESSURE INCREASED [None]
  - CONFUSIONAL STATE [None]
  - DILATATION VENTRICULAR [None]
  - DRUG INTERACTION [None]
  - DRUG TOXICITY [None]
  - DYSPNOEA [None]
  - HYPOTENSION [None]
  - LACTIC ACIDOSIS [None]
  - LETHARGY [None]
  - NODAL ARRHYTHMIA [None]
  - SINUS ARREST [None]
